FAERS Safety Report 6668421-4 (Version None)
Quarter: 2010Q2

REPORT INFORMATION
  Report Type: 
  Country: None (occurrence: None)
  Receive Date: 20100406
  Receipt Date: 20100325
  Transmission Date: 20101027
  Serious: Yes (Other)
  Sender: FDA-Public Use
  Company Number: PHHY2010US18726

PATIENT
  Sex: Female

DRUGS (10)
  1. RECLAST [Suspect]
     Dosage: UNK
     Route: 042
     Dates: start: 20071215
  2. RECLAST [Suspect]
     Dosage: UNK
     Route: 042
     Dates: start: 20081225
  3. SINEMET [Concomitant]
     Indication: PARKINSON'S DISEASE
  4. ADVAIR DISKUS 100/50 [Concomitant]
     Indication: OSTEOPOROSIS
  5. CELEXA [Concomitant]
  6. MAGNESIUM [Concomitant]
  7. ZINC [Concomitant]
  8. VITAMIN D3 [Concomitant]
  9. VITAMIN C [Concomitant]
  10. AZILECT [Concomitant]

REACTIONS (6)
  - ABDOMINAL DISTENSION [None]
  - EYE DISORDER [None]
  - INFLUENZA LIKE ILLNESS [None]
  - TOOTH DISORDER [None]
  - WRIST FRACTURE [None]
  - WRIST SURGERY [None]
